FAERS Safety Report 6335922-8 (Version None)
Quarter: 2009Q3

REPORT INFORMATION
  Report Type: 
  Country: None (occurrence: None)
  Receive Date: 20090901
  Receipt Date: 20070507
  Transmission Date: 20100115
  Serious: Yes (Other)
  Sender: FDA-Public Use
  Company Number: US-ASTRAZENECA-2006UW08314

PATIENT
  Age: 18359 Day
  Sex: Male
  Weight: 103 kg

DRUGS (16)
  1. SEROQUEL [Suspect]
     Indication: BIPOLAR DISORDER
     Dosage: 25-400 MG
     Route: 048
     Dates: start: 20020709
  2. SEROQUEL [Suspect]
     Indication: SCHIZOPHRENIA
     Dosage: 25-400 MG
     Route: 048
     Dates: start: 20020709
  3. SEROQUEL [Suspect]
     Indication: DEPRESSION
     Dosage: 25-400 MG
     Route: 048
     Dates: start: 20020709
  4. SEROQUEL [Suspect]
     Route: 048
     Dates: start: 20050501, end: 20051101
  5. SEROQUEL [Suspect]
     Route: 048
     Dates: start: 20050501, end: 20051101
  6. SEROQUEL [Suspect]
     Route: 048
     Dates: start: 20050501, end: 20051101
  7. SEROQUEL [Suspect]
     Dosage: TOTAL DAILY DOSE 100 MG
     Route: 048
     Dates: start: 20050101
  8. SEROQUEL [Suspect]
     Dosage: TOTAL DAILY DOSE 100 MG
     Route: 048
     Dates: start: 20050101
  9. SEROQUEL [Suspect]
     Dosage: TOTAL DAILY DOSE 100 MG
     Route: 048
     Dates: start: 20050101
  10. ZYPREXA [Suspect]
  11. ABILIFY [Concomitant]
     Dosage: TOTAL DAILY DOSE 10 MG
     Dates: start: 20061101
  12. RISPERDAL [Concomitant]
  13. VALIUM [Concomitant]
     Dosage: TOTAL DALY DOSE 5 MG
  14. WELLBUTRIN SR [Concomitant]
     Dosage: 150 MG DAILY TO TWO TIMES A DAY
     Dates: start: 20020604, end: 20070713
  15. ZOLOFT [Concomitant]
     Route: 048
     Dates: start: 20040115
  16. TEMAZEPAM [Concomitant]
     Dates: start: 20040303

REACTIONS (6)
  - DIABETES MELLITUS [None]
  - DIABETES MELLITUS INADEQUATE CONTROL [None]
  - DIABETIC COMPLICATION [None]
  - DIABETIC NEPHROPATHY [None]
  - DIABETIC NEUROPATHY [None]
  - TYPE 2 DIABETES MELLITUS [None]
